FAERS Safety Report 17326355 (Version 1)
Quarter: 2020Q1

REPORT INFORMATION
  Report Type: Spontaneous
  Country: US (occurrence: US)
  Receive Date: 20200127
  Receipt Date: 20200127
  Transmission Date: 20200409
  Serious: No
  Sender: FDA-Public Use
  Company Number: US-PFIZER INC-2020034574

PATIENT
  Age: 60 Year
  Sex: Female

DRUGS (1)
  1. XELJANZ XR [Suspect]
     Active Substance: TOFACITINIB CITRATE
     Indication: RHEUMATOID ARTHRITIS
     Dosage: 11 MG, DAILY
     Route: 048
     Dates: start: 20191017, end: 202001

REACTIONS (8)
  - Influenza like illness [Recovering/Resolving]
  - Dehydration [Recovering/Resolving]
  - Condition aggravated [Unknown]
  - Peripheral swelling [Unknown]
  - Joint swelling [Unknown]
  - Drug ineffective [Unknown]
  - Diarrhoea [Recovering/Resolving]
  - Feeling abnormal [Unknown]

NARRATIVE: CASE EVENT DATE: 201912
